FAERS Safety Report 6843943-1 (Version None)
Quarter: 2010Q3

REPORT INFORMATION
  Report Type: 
  Country: None (occurrence: None)
  Receive Date: 20100714
  Receipt Date: 20100714
  Transmission Date: 20110219
  Serious: Yes (Hospitalization)
  Sender: FDA-Public Use
  Company Number: None

PATIENT
  Age: 81 Year
  Sex: Male
  Weight: 45.8133 kg

DRUGS (14)
  1. WARFARIN 5 MG [Suspect]
     Indication: ANTICOAGULANT THERAPY
     Dosage: 5 MG DAILY PO, PRIOR TO ADMIT
     Route: 048
  2. WARFARIN 5 MG [Suspect]
     Indication: ATRIAL FIBRILLATION
     Dosage: 5 MG DAILY PO, PRIOR TO ADMIT
     Route: 048
  3. IERBESARTAN [Concomitant]
  4. DILTIAZEM [Concomitant]
  5. CLONIDINE [Concomitant]
  6. LEVOTHYROXINE SODIUM [Concomitant]
  7. METOPROLOL [Concomitant]
  8. PENTOXIFYLLINE [Concomitant]
  9. FUROSEMIDE [Concomitant]
  10. INSULIN [Concomitant]
  11. ACETAMINOPHEN AND HYDROCODONE BITARTRATE [Concomitant]
  12. FISH OIL [Concomitant]
  13. MULTI-VITAMIN [Concomitant]
  14. BICALUTAMIDE [Concomitant]

REACTIONS (1)
  - HAEMATURIA [None]
